FAERS Safety Report 9681440 (Version 1)
Quarter: 2013Q4

REPORT INFORMATION
  Report Type: Spontaneous
  Country: US (occurrence: US)
  Receive Date: 20131111
  Receipt Date: 20131111
  Transmission Date: 20140711
  Serious: No
  Sender: FDA-Public Use
  Company Number: US-BAYER-2013-135197

PATIENT
  Age: 35 Year
  Sex: Female
  Weight: 54 kg

DRUGS (3)
  1. ALEVE TABLET [Suspect]
     Indication: BACK PAIN
     Dosage: 1-2 DF, PRN
     Route: 048
     Dates: start: 2012, end: 20131020
  2. SKELAXIN [Concomitant]
  3. IBUPROFEN [Concomitant]

REACTIONS (3)
  - Chest pain [Not Recovered/Not Resolved]
  - Costochondritis [Not Recovered/Not Resolved]
  - Pleurisy [Not Recovered/Not Resolved]
